FAERS Safety Report 17929298 (Version 2)
Quarter: 2021Q2

REPORT INFORMATION
  Report Type: Spontaneous
  Country: CA (occurrence: CA)
  Receive Date: 20200623
  Receipt Date: 20210628
  Transmission Date: 20210717
  Serious: Yes (Hospitalization)
  Sender: FDA-Public Use
  Company Number: CA-TEVA-2020-CA-1790977

PATIENT
  Age: 15 Year
  Sex: Female
  Weight: 80 kg

DRUGS (4)
  1. IBUPROFEN. [Concomitant]
     Active Substance: IBUPROFEN
  2. FLUOXETINE [Suspect]
     Active Substance: FLUOXETINE HYDROCHLORIDE
     Indication: DEPRESSION
     Route: 048
  3. MULTIVITAMINE(S) [Concomitant]
     Active Substance: VITAMINS
  4. OMEGA?3 ACIDS [Concomitant]
     Active Substance: OMEGA-3 FATTY ACIDS

REACTIONS (7)
  - Nausea [Unknown]
  - Depression [Unknown]
  - Intentional overdose [Unknown]
  - Headache [Unknown]
  - Disturbance in attention [Unknown]
  - Mood altered [Unknown]
  - Suicidal ideation [Unknown]
